FAERS Safety Report 16877766 (Version 1)
Quarter: 2019Q4

REPORT INFORMATION
  Report Type: Spontaneous
  Country: US (occurrence: US)
  Receive Date: 20191002
  Receipt Date: 20191002
  Transmission Date: 20200122
  Serious: Yes (Other)
  Sender: FDA-Public Use
  Company Number: None

PATIENT
  Age: 41 Year
  Sex: Female
  Weight: 166.5 kg

DRUGS (2)
  1. FASENRA [Suspect]
     Active Substance: BENRALIZUMAB
     Indication: ASTHMA
  2. FASENRA [Suspect]
     Active Substance: BENRALIZUMAB
     Indication: BRONCHIAL HYPERREACTIVITY

REACTIONS (11)
  - Nausea [None]
  - Myalgia [None]
  - Pyrexia [None]
  - Tachycardia [None]
  - Abdominal pain [None]
  - Influenza like illness [None]
  - Arthralgia [None]
  - Pain [None]
  - Bone pain [None]
  - Chest pain [None]
  - Palpitations [None]

NARRATIVE: CASE EVENT DATE: 20180915
